FAERS Safety Report 19308491 (Version 1)
Quarter: 2021Q2

REPORT INFORMATION
  Report Type: Spontaneous
  Country: DE (occurrence: DE)
  Receive Date: 20210525
  Receipt Date: 20210525
  Transmission Date: 20210717
  Serious: Yes (Life-Threatening, Hospitalization, Other)
  Sender: FDA-Public Use
  Company Number: NVSC2020DE349552

PATIENT
  Age: 59 Year
  Sex: Male
  Weight: 98 kg

DRUGS (20)
  1. ACETYLSALICYLIC ACID [Concomitant]
     Active Substance: ASPIRIN
     Indication: PRODUCT USED FOR UNKNOWN INDICATION
     Dosage: UNK
     Route: 065
  2. CLARELUX [Concomitant]
     Active Substance: CLOBETASOL PROPIONATE
     Indication: PSORIASIS
     Dosage: UNK(500 SCHAUM,FORM: FOAM)
     Route: 065
     Dates: start: 2006
  3. PREGABALIN. [Concomitant]
     Active Substance: PREGABALIN
     Indication: PRODUCT USED FOR UNKNOWN INDICATION
     Dosage: UNK, BID (1?0?1?0)
     Route: 065
  4. USTEKINUMAB [Concomitant]
     Active Substance: USTEKINUMAB
     Indication: PSORIASIS
     Dosage: UNK
     Route: 065
     Dates: start: 202010
  5. COSENTYX [Suspect]
     Active Substance: SECUKINUMAB
     Indication: PSORIASIS
     Dosage: 300 MG, QMO
     Route: 058
     Dates: start: 201901, end: 202004
  6. ATORVASTATIN [Concomitant]
     Active Substance: ATORVASTATIN
     Indication: PRODUCT USED FOR UNKNOWN INDICATION
     Dosage: UNK
     Route: 065
  7. BETADERMIC [Concomitant]
     Indication: PSORIASIS
     Dosage: UNK
     Route: 065
     Dates: start: 2006
  8. METAMIZOLE [Concomitant]
     Active Substance: METAMIZOLE
     Indication: PRODUCT USED FOR UNKNOWN INDICATION
     Dosage: UNK(3 IN TO DAILY A S NEEDED)
     Route: 065
  9. ZOLMITRIPTAN. [Concomitant]
     Active Substance: ZOLMITRIPTAN
     Indication: PRODUCT USED FOR UNKNOWN INDICATION
     Dosage: UNK(AS NEEDED)
     Route: 065
  10. COSENTYX [Suspect]
     Active Substance: SECUKINUMAB
     Indication: PSORIATIC ARTHROPATHY
     Dosage: 300 MG, QMO
     Route: 058
     Dates: start: 202004, end: 20200630
  11. COSENTYX [Suspect]
     Active Substance: SECUKINUMAB
     Indication: PSORIASIS
  12. TORASEMID [Concomitant]
     Active Substance: TORSEMIDE
     Indication: PRODUCT USED FOR UNKNOWN INDICATION
     Dosage: UNK
     Route: 065
  13. KALINOR [Concomitant]
     Indication: PRODUCT USED FOR UNKNOWN INDICATION
     Dosage: UNK
     Route: 065
  14. PANTOPRAZOL [Concomitant]
     Active Substance: PANTOPRAZOLE SODIUM
     Indication: PRODUCT USED FOR UNKNOWN INDICATION
     Dosage: UNK
     Route: 065
  15. TAMSULOSIN [Concomitant]
     Active Substance: TAMSULOSIN
     Indication: PRODUCT USED FOR UNKNOWN INDICATION
     Dosage: UNK
     Route: 065
  16. TOPIRAMAT [Concomitant]
     Active Substance: TOPIRAMATE
     Indication: PRODUCT USED FOR UNKNOWN INDICATION
     Dosage: UNK(2?0?2?0)
     Route: 065
  17. TEMAZEPAM. [Concomitant]
     Active Substance: TEMAZEPAM
     Indication: PRODUCT USED FOR UNKNOWN INDICATION
     Dosage: UNK(IN THE EVENING AS NEEDED)
     Route: 065
  18. SUMATRIPTAN. [Concomitant]
     Active Substance: SUMATRIPTAN
     Indication: PRODUCT USED FOR UNKNOWN INDICATION
     Dosage: UNK(AS NEEDED)
     Route: 065
  19. CANDESARTAN. [Concomitant]
     Active Substance: CANDESARTAN
     Indication: PRODUCT USED FOR UNKNOWN INDICATION
     Dosage: UNK
     Route: 065
  20. THEOPHYLLIN [Concomitant]
     Active Substance: THEOPHYLLINE ANHYDROUS
     Indication: PRODUCT USED FOR UNKNOWN INDICATION
     Dosage: UNK
     Route: 065

REACTIONS (36)
  - Abdominal pain [Recovering/Resolving]
  - Syncope [Not Recovered/Not Resolved]
  - Hernia [Unknown]
  - Ulcer [Unknown]
  - Haematocrit decreased [Recovering/Resolving]
  - Haematochezia [Recovered/Resolved]
  - Weight decreased [Recovered/Resolved]
  - Anaemia [Recovering/Resolving]
  - Mucosal discolouration [Unknown]
  - Diarrhoea haemorrhagic [Recovering/Resolving]
  - Colitis [Recovered/Resolved]
  - Diarrhoea [Recovering/Resolving]
  - Ill-defined disorder [Unknown]
  - Bundle branch block right [Unknown]
  - Gastrointestinal haemorrhage [Recovered/Resolved]
  - Gastrointestinal haemorrhage [Recovered/Resolved]
  - Aortic stenosis [Unknown]
  - Nephrolithiasis [Unknown]
  - Device occlusion [Unknown]
  - Polyp [Unknown]
  - Pancreatic steatosis [Unknown]
  - Cluster headache [Unknown]
  - General physical health deterioration [Not Recovered/Not Resolved]
  - Haemoglobin decreased [Recovering/Resolving]
  - Normocytic anaemia [Unknown]
  - Enteritis [Recovering/Resolving]
  - Oedema mucosal [Unknown]
  - Cryptitis [Unknown]
  - Asthenia [Not Recovered/Not Resolved]
  - Gastrointestinal haemorrhage [Recovered/Resolved]
  - Diverticulum intestinal [Unknown]
  - Intervertebral disc degeneration [Unknown]
  - Inflammatory bowel disease [Recovered/Resolved]
  - Hypotension [Recovering/Resolving]
  - Gastrointestinal motility disorder [Unknown]
  - Lymphadenopathy [Unknown]

NARRATIVE: CASE EVENT DATE: 2020
